FAERS Safety Report 11607912 (Version 1)
Quarter: 2015Q4

REPORT INFORMATION
  Report Type: Spontaneous
  Country: US (occurrence: US)
  Receive Date: 20151007
  Receipt Date: 20151007
  Transmission Date: 20160304
  Serious: Yes (Hospitalization)
  Sender: FDA-Public Use
  Company Number: US-UNITED THERAPEUTICS-UNT-2015-008244

PATIENT
  Age: 43 Year
  Sex: Male
  Weight: 84.81 kg

DRUGS (3)
  1. REVATIO [Concomitant]
     Active Substance: SILDENAFIL CITRATE
     Indication: PRODUCT USED FOR UNKNOWN INDICATION
  2. REMODULIN [Suspect]
     Active Substance: TREPROSTINIL
     Indication: PULMONARY ARTERIAL HYPERTENSION
     Dosage: 0.02975 ?G/KG, CONTINUING
     Route: 041
     Dates: start: 20150409
  3. LETAIRIS [Concomitant]
     Active Substance: AMBRISENTAN
     Indication: PRODUCT USED FOR UNKNOWN INDICATION

REACTIONS (8)
  - Injection site erythema [Unknown]
  - Hyperhidrosis [Unknown]
  - Oxygen saturation decreased [Unknown]
  - Infection [Unknown]
  - Injection site pruritus [Not Recovered/Not Resolved]
  - Lung infection [Unknown]
  - Injection site discharge [Unknown]
  - Mass [Unknown]

NARRATIVE: CASE EVENT DATE: 20150703
